FAERS Safety Report 8140932-4 (Version None)
Quarter: 2012Q1

REPORT INFORMATION
  Report Type: 
  Country: None (occurrence: None)
  Receive Date: 20120216
  Receipt Date: 20120206
  Transmission Date: 20120608
  Serious: Yes (Other)
  Sender: FDA-Public Use
  Company Number: JP-AMGEN-JPNCT2011065994

PATIENT
  Age: 63 Year
  Sex: Male
  Weight: 51 kg

DRUGS (6)
  1. PANITUMUMAB [Suspect]
     Dosage: 254 MG, Q2WK
     Route: 041
     Dates: start: 20110422, end: 20110930
  2. FLUOROURACIL [Suspect]
     Indication: COLORECTAL CANCER
     Route: 040
     Dates: start: 20110318, end: 20111209
  3. PANITUMUMAB [Suspect]
     Indication: COLORECTAL CANCER
     Dosage: 318 MG, Q2WK
     Route: 041
     Dates: start: 20110318, end: 20110318
  4. LEVOLEUCOVORIN CALCIUM [Suspect]
     Indication: COLORECTAL CANCER
     Route: 041
     Dates: start: 20110318, end: 20111209
  5. IRINOTECAN HCL [Suspect]
     Indication: COLORECTAL CANCER
     Route: 041
     Dates: start: 20110318, end: 20110930
  6. FLUOROURACIL [Suspect]
     Route: 041
     Dates: start: 20110318, end: 20111209

REACTIONS (3)
  - ORAL HERPES [None]
  - INTERSTITIAL LUNG DISEASE [None]
  - THROMBOSIS [None]
